FAERS Safety Report 12337046 (Version 1)
Quarter: 2016Q2

REPORT INFORMATION
  Report Type: Spontaneous
  Country: GB (occurrence: GB)
  Receive Date: 20160505
  Receipt Date: 20160505
  Transmission Date: 20160815
  Serious: Yes (Life-Threatening)
  Sender: FDA-Public Use
  Company Number: GB-TEVA-656427ACC

PATIENT
  Age: 71 Year
  Sex: Female
  Weight: 111 kg

DRUGS (9)
  1. BISOPROLOL [Concomitant]
     Active Substance: BISOPROLOL
  2. MUPIROCIN. [Concomitant]
     Active Substance: MUPIROCIN
  3. AMIODARONE [Concomitant]
     Active Substance: AMIODARONE
  4. ARANESP [Concomitant]
     Active Substance: DARBEPOETIN ALFA
  5. RENACET [Concomitant]
  6. LANSOPRAZOLE. [Concomitant]
     Active Substance: LANSOPRAZOLE
  7. WARFARIN [Suspect]
     Active Substance: WARFARIN
     Indication: ATRIAL FIBRILLATION
     Dosage: 1MG BUT VARIABLE
     Route: 048
     Dates: end: 20160312
  8. FUROSEMIDE. [Concomitant]
     Active Substance: FUROSEMIDE
  9. ALFACALCIDOL [Concomitant]
     Active Substance: ALFACALCIDOL

REACTIONS (3)
  - Skin ulcer [Unknown]
  - Calciphylaxis [Unknown]
  - Skin lesion [Unknown]

NARRATIVE: CASE EVENT DATE: 20160414
